FAERS Safety Report 4603173-0 (Version None)
Quarter: 2005Q1

REPORT INFORMATION
  Report Type: 
  Country: None (occurrence: None)
  Receive Date: 20050307
  Receipt Date: 20050221
  Transmission Date: 20050727
  Serious: Yes (Death)
  Sender: FDA-Public Use
  Company Number: 2005CG00015

PATIENT
  Age: 2 Year
  Sex: Male
  Weight: 13.5 kg

DRUGS (1)
  1. DIPRIVAN [Suspect]
     Indication: SEDATION
     Dosage: 140 MG /HR IV
     Route: 042
     Dates: start: 20041118

REACTIONS (11)
  - ACUTE PULMONARY OEDEMA [None]
  - ARRHYTHMIA [None]
  - BLOOD PRESSURE DECREASED [None]
  - CARDIAC ARREST [None]
  - CARDIOVASCULAR DISORDER [None]
  - HEART RATE INCREASED [None]
  - HYPERTENSIVE CRISIS [None]
  - HYPOTHERMIA [None]
  - MYOCARDITIS [None]
  - RESPIRATORY RATE INCREASED [None]
  - SUDDEN INFANT DEATH SYNDROME [None]
